FAERS Safety Report 16233193 (Version 1)
Quarter: 2019Q2

REPORT INFORMATION
  Report Type: Spontaneous
  Country: NL (occurrence: NL)
  Receive Date: 20190424
  Receipt Date: 20190424
  Transmission Date: 20190711
  Serious: Yes (Life-Threatening, Hospitalization)
  Sender: FDA-Public Use
  Company Number: NL-MYLANLABS-2019M1036952

PATIENT
  Age: 82 Year
  Sex: Female
  Weight: 99 kg

DRUGS (14)
  1. PRAVASTATINE                       /00880401/ [Concomitant]
     Active Substance: PRAVASTATIN
     Dosage: 1DD1
  2. CALCI CHEW D3 [Concomitant]
     Active Substance: CALCIUM CARBONATE\CHOLECALCIFEROL
     Dosage: 1DD1
  3. CARBAMAZEPINE. [Concomitant]
     Active Substance: CARBAMAZEPINE
     Dosage: 1DD1
  4. BUMETANIDE. [Concomitant]
     Active Substance: BUMETANIDE
     Dosage: 1DD1
  5. SALBUTAMOL [Suspect]
     Active Substance: ALBUTEROL
     Indication: BRONCHITIS
     Dosage: 3X PER DAG 1 INHALATIE
     Route: 055
     Dates: start: 20171213, end: 20171213
  6. AZITHROMYCIN ANHYDROUS. [Suspect]
     Active Substance: AZITHROMYCIN ANHYDROUS
     Indication: BRONCHITIS
     Dosage: 1X PER DAG 1 TABLET
     Route: 048
     Dates: start: 20171213
  7. NEDIOS [Concomitant]
     Dosage: 1DD1
  8. NEBIVOLOL. [Concomitant]
     Active Substance: NEBIVOLOL
     Dosage: 1DD0,5 TABLET
  9. CODEINEFOSFAAT [Concomitant]
     Active Substance: CODEINE PHOSPHATE
     Dosage: 3DD1
  10. ISOSORBIDEDINITRAAT [Concomitant]
     Dosage: 2DD0,5 TABLET
  11. DERMOVATE [Concomitant]
     Active Substance: CLOBETASOL
     Dosage: 1DD
  12. IRBESARTAN. [Concomitant]
     Active Substance: IRBESARTAN
     Dosage: 1DD1
  13. PREDNISOLON                        /00016201/ [Concomitant]
     Active Substance: PREDNISOLONE
     Dosage: 1DD0,5 TABLET
  14. ACENOCOUMAROL [Concomitant]
     Active Substance: ACENOCOUMAROL
     Dosage: UNK

REACTIONS (3)
  - Condition aggravated [Recovered/Resolved]
  - Cardiac failure [Recovered/Resolved]
  - Angina pectoris [Recovered/Resolved]

NARRATIVE: CASE EVENT DATE: 20171213
